FAERS Safety Report 10360748 (Version 2)
Quarter: 2014Q3

REPORT INFORMATION
  Report Type: Spontaneous
  Country: US (occurrence: US)
  Receive Date: 20140804
  Receipt Date: 20140815
  Transmission Date: 20150326
  Serious: Yes (Other)
  Sender: FDA-Public Use
  Company Number: US-PFIZER INC-2014212359

PATIENT
  Age: 60 Year
  Sex: Female

DRUGS (10)
  1. VALACYCLOVIR [Concomitant]
     Active Substance: VALACYCLOVIR HYDROCHLORIDE
  2. CALCIUM WITH VITAMIN D [Concomitant]
     Active Substance: CALCIUM\VITAMIN D
     Dosage: UNK
  3. TRAZODONE [Concomitant]
     Active Substance: TRAZODONE HYDROCHLORIDE
  4. NORCO [Concomitant]
     Active Substance: ACETAMINOPHEN\HYDROCODONE BITARTRATE
     Dosage: PRN
  5. TRAMADOL [Concomitant]
     Active Substance: TRAMADOL
  6. BUPROPION [Concomitant]
     Active Substance: BUPROPION
  7. HYDROXYCHLOROQUINE [Concomitant]
     Active Substance: HYDROXYCHLOROQUINE
  8. MELOXICAM. [Concomitant]
     Active Substance: MELOXICAM
  9. LYRICA [Suspect]
     Active Substance: PREGABALIN
     Indication: FIBROMYALGIA
     Dosage: 50 MG IN AM AND 100MG IN PM
     Route: 048
  10. LUTEIN [Concomitant]
     Active Substance: LUTEIN
     Dosage: UNK

REACTIONS (2)
  - Thyroid neoplasm [Unknown]
  - Goitre [Unknown]
